FAERS Safety Report 5910756-4 (Version None)
Quarter: 2008Q4

REPORT INFORMATION
  Report Type: 
  Country: None (occurrence: None)
  Receive Date: 20081007
  Receipt Date: 20080414
  Transmission Date: 20090506
  Serious: No
  Sender: FDA-Public Use
  Company Number: US-ASTRAZENECA-2008UW07694

PATIENT
  Age: 66 Year
  Sex: Female

DRUGS (11)
  1. ARIMIDEX [Suspect]
     Indication: BREAST CANCER
     Dates: start: 20050901
  2. SYNTHROID [Concomitant]
  3. CLARITIN [Concomitant]
     Route: 048
  4. NEXIUM [Concomitant]
     Route: 048
  5. MOBIC [Concomitant]
  6. CALCIUM [Concomitant]
  7. GLUCOSAMINE DS [Concomitant]
  8. VITAMIN D [Concomitant]
  9. ZOCOR [Concomitant]
  10. LISINOPRIL [Concomitant]
  11. ZOMETA [Concomitant]

REACTIONS (3)
  - CARPAL TUNNEL SYNDROME [None]
  - THYROID DISORDER [None]
  - VULVOVAGINAL DRYNESS [None]
